FAERS Safety Report 9938661 (Version 1)
Quarter: 2014Q1

REPORT INFORMATION
  Report Type: Spontaneous
  Country: US (occurrence: US)
  Receive Date: 20140303
  Receipt Date: 20140303
  Transmission Date: 20141002
  Serious: Yes (Other)
  Sender: FDA-Public Use
  Company Number: US-SA-2014SA025380

PATIENT
  Age: 76 Year
  Sex: Female

DRUGS (2)
  1. ALLEGRA [Suspect]
     Indication: SINUS HEADACHE
     Route: 048
  2. ALLEGRA D [Suspect]
     Route: 048

REACTIONS (5)
  - Neoplasm malignant [Unknown]
  - Renal disorder [Unknown]
  - Wrong technique in drug usage process [Unknown]
  - Medication residue present [Unknown]
  - Drug ineffective [Unknown]
